FAERS Safety Report 7054691-X (Version None)
Quarter: 2010Q4

REPORT INFORMATION
  Report Type: 
  Country: None (occurrence: None)
  Receive Date: 20101015
  Receipt Date: 20100929
  Transmission Date: 20110411
  Serious: Yes (Death, Hospitalization)
  Sender: FDA-Public Use
  Company Number: 2010003989

PATIENT
  Age: 63 Year
  Sex: Male

DRUGS (1)
  1. TARCEVA [Suspect]
     Indication: LUNG NEOPLASM MALIGNANT
     Dosage: (150 MG,QD),ORAL
     Route: 048
     Dates: start: 20100909, end: 20100920

REACTIONS (7)
  - COUGH [None]
  - DYSPNOEA [None]
  - FALL [None]
  - HEART RATE INCREASED [None]
  - LIMB INJURY [None]
  - OEDEMA PERIPHERAL [None]
  - PANIC ATTACK [None]
